FAERS Safety Report 12592687 (Version 3)
Quarter: 2016Q3

REPORT INFORMATION
  Report Type: Spontaneous
  Country: US (occurrence: US)
  Receive Date: 20160726
  Receipt Date: 20160906
  Transmission Date: 20161109
  Serious: Yes (Death, Hospitalization, Other)
  Sender: FDA-Public Use
  Company Number: US-PFIZER INC-2016348915

PATIENT
  Age: 43 Year
  Sex: Female

DRUGS (6)
  1. GEMZAR [Suspect]
     Active Substance: GEMCITABINE HYDROCHLORIDE
     Dosage: UNK
  2. CAPECITABINE. [Concomitant]
     Active Substance: CAPECITABINE
     Dosage: UNK, CYCLIC (2 WEEKS ON 7 DAYS OFF)
     Dates: start: 20160523, end: 20160613
  3. GEMZAR [Suspect]
     Active Substance: GEMCITABINE HYDROCHLORIDE
     Indication: BREAST CANCER METASTATIC
     Dosage: 1328 MG, CYCLIC (DAY 1 AND 8 Q21 DAYS)
     Route: 042
     Dates: start: 20160613
  4. GEMZAR [Suspect]
     Active Substance: GEMCITABINE HYDROCHLORIDE
     Dosage: UNK
     Dates: end: 20160620
  5. GEMZAR [Suspect]
     Active Substance: GEMCITABINE HYDROCHLORIDE
     Dosage: UNK
  6. CARBOPLATIN. [Concomitant]
     Active Substance: CARBOPLATIN
     Indication: METASTATIC NEOPLASM
     Dosage: AUC 2, CYCLIC (Q 21 DAYS)
     Dates: start: 20160613, end: 20160620

REACTIONS (5)
  - Breast cancer metastatic [Unknown]
  - Hepatic failure [Unknown]
  - Metabolic acidosis [Unknown]
  - Disease progression [Unknown]
  - Septic shock [Fatal]

NARRATIVE: CASE EVENT DATE: 20160714
